FAERS Safety Report 4284210-2 (Version None)
Quarter: 2004Q1

REPORT INFORMATION
  Report Type: 
  Country: None (occurrence: None)
  Receive Date: 20040130
  Receipt Date: 20040119
  Transmission Date: 20041129
  Serious: Yes (Other)
  Sender: FDA-Public Use
  Company Number: ES-JNJFOC-20040103765

PATIENT
  Sex: Male

DRUGS (2)
  1. REMICADE [Suspect]
     Indication: PSORIATIC ARTHROPATHY
     Dosage: 5 MG/KG, INTRAVENOUS
     Route: 042
     Dates: start: 20030101, end: 20031201
  2. ANGIOTENSIN CONVERTING ENZYME INHIBITOR [Concomitant]

REACTIONS (1)
  - PROSTATE CANCER [None]
